FAERS Safety Report 9592327 (Version 1)
Quarter: 2013Q3

REPORT INFORMATION
  Report Type: Spontaneous
  Country: US (occurrence: None)
  Receive Date: 20130930
  Receipt Date: 20130930
  Transmission Date: 20140515
  Serious: Yes (Other)
  Sender: FDA-Public Use
  Company Number: 1000047336

PATIENT
  Age: 90 Year
  Sex: Male

DRUGS (6)
  1. LINZESS (LINACLOTIDE) (290 MICROGRAM, CAPSULES) [Suspect]
     Indication: CONSTIPATION
     Route: 048
     Dates: start: 20130722
  2. LOVASTATIN (LOVASTATIN) [Concomitant]
  3. PRILOSEC (OMEPRAZOLE) (OMEPRAZOLE) [Concomitant]
  4. BABY ASPIRIN (ACETYLSALICYLIC ACID) (ACETYLSALICYLIC ACID) [Concomitant]
  5. VITAMIN C (ASCORBIC ACID) (ASCORBIC ACID) [Concomitant]
  6. GROWTH HORMONE NOS (GROWTH HORMONE NOS) [Concomitant]

REACTIONS (1)
  - Diarrhoea [None]
